FAERS Safety Report 20811238 (Version 4)
Quarter: 2022Q3

REPORT INFORMATION
  Report Type: Spontaneous
  Country: US (occurrence: US)
  Receive Date: 20220510
  Receipt Date: 20220928
  Transmission Date: 20221027
  Serious: Yes (Hospitalization, Other)
  Sender: FDA-Public Use
  Company Number: US-MALLINCKRODT-T202202221

PATIENT
  Age: 43 Year
  Sex: Female

DRUGS (6)
  1. H.P. ACTHAR [Suspect]
     Active Substance: CORTICOTROPIN
     Indication: Systemic lupus erythematosus
     Dosage: 1 MILLILITER (80 UNITS), THREE TIMES A WEEK
     Route: 058
     Dates: start: 202106
  2. BENLYSTA [Concomitant]
     Active Substance: BELIMUMAB
     Indication: Product used for unknown indication
     Dosage: UNK
     Route: 065
  3. XANAX [Concomitant]
     Active Substance: ALPRAZOLAM
     Indication: Product used for unknown indication
     Dosage: UNK
     Route: 065
  4. BENADRYL [Concomitant]
     Active Substance: DIPHENHYDRAMINE HYDROCHLORIDE
     Indication: Product used for unknown indication
     Dosage: UNK
     Route: 065
  5. ZOFRAN [Concomitant]
     Active Substance: ONDANSETRON HYDROCHLORIDE
     Indication: Product used for unknown indication
     Dosage: UNK
     Route: 065
  6. BUDESONIDE [Concomitant]
     Active Substance: BUDESONIDE
     Indication: Product used for unknown indication
     Dosage: UNK
     Route: 065

REACTIONS (9)
  - Systemic lupus erythematosus [Not Recovered/Not Resolved]
  - Choking [Unknown]
  - Haemorrhage [Not Recovered/Not Resolved]
  - Oesophageal dilatation [Unknown]
  - Contusion [Not Recovered/Not Resolved]
  - Illness [Unknown]
  - Abdominal discomfort [Unknown]
  - Alopecia [Not Recovered/Not Resolved]
  - Product dose omission issue [Unknown]

NARRATIVE: CASE EVENT DATE: 20220201
